FAERS Safety Report 6765223-5 (Version None)
Quarter: 2010Q2

REPORT INFORMATION
  Report Type: 
  Country: None (occurrence: None)
  Receive Date: 20100610
  Receipt Date: 20100610
  Transmission Date: 20101027
  Serious: Yes (Hospitalization)
  Sender: FDA-Public Use
  Company Number: None

PATIENT
  Sex: Male
  Weight: 79.8 kg

DRUGS (4)
  1. FLUOROURACIL [Suspect]
     Dosage: 10080 MG
     Dates: end: 20100518
  2. BEVACIZUMAB (RHUMAB VEGF) [Suspect]
     Dosage: 800 MG
     Dates: end: 20100518
  3. LEUCOVORIN CALCIUM [Suspect]
     Dosage: 1600 MG
     Dates: end: 20100518
  4. ELOXATIN [Suspect]
     Dosage: 300 MG
     Dates: end: 20100518

REACTIONS (4)
  - ARTHRITIS BACTERIAL [None]
  - MUSCULOSKELETAL PAIN [None]
  - NEOPLASM [None]
  - PHARYNGITIS STREPTOCOCCAL [None]
